FAERS Safety Report 4388949-X (Version None)
Quarter: 2004Q2

REPORT INFORMATION
  Report Type: 
  Country: None (occurrence: None)
  Receive Date: 20040624
  Receipt Date: 20040616
  Transmission Date: 20050107
  Serious: Yes (Death)
  Sender: FDA-Public Use
  Company Number: 163-20785-04060425

PATIENT
  Age: 54 Year
  Sex: Male

DRUGS (1)
  1. THALOMID [Suspect]
     Indication: ACUTE MYELOID LEUKAEMIA
     Dosage: 150 MG, DAILY, ORAL
     Route: 048
     Dates: start: 20040505, end: 20040101

REACTIONS (2)
  - PNEUMONIA [None]
  - SEPSIS [None]
